FAERS Safety Report 6837893-4 (Version None)
Quarter: 2010Q3

REPORT INFORMATION
  Report Type: 
  Country: None (occurrence: None)
  Receive Date: 20100713
  Receipt Date: 20070524
  Transmission Date: 20110219
  Serious: No
  Sender: FDA-Public Use
  Company Number: US-PFIZER INC-2007044926

PATIENT
  Sex: Female
  Weight: 72.7 kg

DRUGS (4)
  1. CHANTIX [Suspect]
     Indication: SMOKING CESSATION THERAPY
     Dates: start: 20070509
  2. VALSARTAN [Concomitant]
     Indication: HYPERTENSION
  3. EFFEXOR [Concomitant]
  4. LIPITOR [Concomitant]
     Indication: BLOOD CHOLESTEROL INCREASED

REACTIONS (3)
  - NAUSEA [None]
  - PAIN [None]
  - TREMOR [None]
